FAERS Safety Report 7593800-0 (Version None)
Quarter: 2011Q3

REPORT INFORMATION
  Report Type: 
  Country: None (occurrence: None)
  Receive Date: 20110706
  Receipt Date: 20110624
  Transmission Date: 20111222
  Serious: Yes (Hospitalization, Other)
  Sender: FDA-Public Use
  Company Number: PHHY2010US38955

PATIENT
  Sex: Male
  Weight: 22.2 kg

DRUGS (3)
  1. FOLIC ACID [Concomitant]
     Indication: HAEMATOPOIETIC STEM CELL MOBILISATION
     Dosage: 1 MG, QD SINCE 6 MONTH
  2. EXJADE [Suspect]
     Dosage: 500 MG, QD
     Route: 048
  3. PENICILLIN [Concomitant]
     Indication: PNEUMOCOCCAL INFECTION
     Dosage: 250 MG, BID SINCE BIRTH
     Route: 048

REACTIONS (6)
  - CONFUSIONAL STATE [None]
  - MOTOR DYSFUNCTION [None]
  - SENSORY LOSS [None]
  - APHASIA [None]
  - DISORIENTATION [None]
  - CEREBROVASCULAR ACCIDENT [None]
